FAERS Safety Report 14681788 (Version 3)
Quarter: 2018Q2

REPORT INFORMATION
  Report Type: Spontaneous
  Country: JP (occurrence: JP)
  Receive Date: 20180326
  Receipt Date: 20180525
  Transmission Date: 20180711
  Serious: Yes (Life-Threatening, Hospitalization, Other)
  Sender: FDA-Public Use
  Company Number: JP-PFIZER INC-2018118046

PATIENT
  Age: 27 Year
  Sex: Male
  Weight: 59.25 kg

DRUGS (12)
  1. FOSPHENYTOIN SODIUM. [Suspect]
     Active Substance: FOSPHENYTOIN SODIUM
     Indication: STATUS EPILEPTICUS
     Dosage: 1350 MG, 1X/DAY
     Route: 041
     Dates: start: 20180302, end: 20180302
  2. DIAZEPAM. [Concomitant]
     Active Substance: DIAZEPAM
     Indication: STATUS EPILEPTICUS
     Dosage: 10 MG, 2X/DAY
     Route: 042
     Dates: start: 20180302, end: 20180302
  3. LASIX [Concomitant]
     Active Substance: FUROSEMIDE
     Indication: URINE OUTPUT DECREASED
     Dosage: 20 MG, 1X/DAY
     Route: 042
     Dates: start: 20180302, end: 20180302
  4. HEPARIN [Concomitant]
     Active Substance: HEPARIN SODIUM
     Indication: PROPHYLAXIS
     Dosage: UNK
     Route: 042
     Dates: start: 20180302, end: 20180302
  5. OMEPRAL [Suspect]
     Active Substance: OMEPRAZOLE
     Indication: PROPHYLAXIS
     Dosage: 20 MG, 2X/DAY
     Route: 042
     Dates: start: 20180302, end: 20180303
  6. PROPOFOL. [Suspect]
     Active Substance: PROPOFOL
     Indication: STATUS EPILEPTICUS
     Dosage: UNK, 1X/DAY
     Route: 041
     Dates: start: 20180302, end: 20180303
  7. HEPAFLUSH [Concomitant]
     Active Substance: HEPARIN SODIUM
     Indication: CATHETER MANAGEMENT
     Dosage: 1 DF, 2X/DAY
     Route: 042
     Dates: start: 20180302, end: 20180303
  8. E KEPPRA [Suspect]
     Active Substance: LEVETIRACETAM
     Indication: STATUS EPILEPTICUS
     Dosage: UNK
     Route: 041
     Dates: start: 20180302, end: 20180307
  9. NORADRENALINE [Concomitant]
     Active Substance: NOREPINEPHRINE
     Indication: BLOOD PRESSURE DECREASED
     Dosage: 5 MG, 1X/DAY
     Route: 042
     Dates: start: 20180302, end: 20180302
  10. FENTANYL. [Concomitant]
     Active Substance: FENTANYL
     Indication: ANALGESIC THERAPY
     Dosage: 2.5 MG, 1X/DAY
     Route: 042
     Dates: start: 20180302, end: 20180303
  11. UNASYN [Concomitant]
     Active Substance: AMPICILLIN SODIUM\SULBACTAM SODIUM
     Indication: SEPSIS
     Dosage: 3 G, 2X/DAY
     Route: 041
     Dates: start: 20180302, end: 20180303
  12. SODIUM PHOSPHATE [Concomitant]
     Active Substance: SODIUM PHOSPHATE
     Indication: ELECTROLYTE SUBSTITUTION THERAPY
     Dosage: 20 ML, 1X/DAY
     Route: 041
     Dates: start: 20180302, end: 20180302

REACTIONS (1)
  - Rhabdomyolysis [Recovered/Resolved]

NARRATIVE: CASE EVENT DATE: 20180303
